FAERS Safety Report 23667836 (Version 1)
Quarter: 2024Q1

REPORT INFORMATION
  Report Type: Spontaneous
  Country: US (occurrence: None)
  Receive Date: 20240322
  Receipt Date: 20240322
  Transmission Date: 20240410
  Serious: Yes (Hospitalization)
  Sender: FDA-Public Use
  Company Number: None

PATIENT
  Sex: Male

DRUGS (7)
  1. AMBRISENTAN [Suspect]
     Active Substance: AMBRISENTAN
     Dosage: FREQUENCY : DAILY;?
     Route: 048
     Dates: start: 20240222
  2. ALLOPURINOL [Concomitant]
  3. ATORVASTATIN [Concomitant]
  4. ATORVASTATIN [Concomitant]
  5. ENTRESTO [Concomitant]
     Active Substance: SACUBITRIL\VALSARTAN
  6. LETAIRIS [Concomitant]
     Active Substance: AMBRISENTAN
  7. TADALAFIL [Concomitant]
     Active Substance: TADALAFIL

REACTIONS (3)
  - Urinary tract infection [None]
  - Hypotension [None]
  - Confusional state [None]
